FAERS Safety Report 7491661-1 (Version None)
Quarter: 2011Q2

REPORT INFORMATION
  Report Type: 
  Country: None (occurrence: None)
  Receive Date: 20110519
  Receipt Date: 20110510
  Transmission Date: 20111010
  Serious: Yes (Other)
  Sender: FDA-Public Use
  Company Number: US-ABBOTT-11P-163-0716115-00

PATIENT
  Sex: Female
  Weight: 88.984 kg

DRUGS (5)
  1. HUMIRA [Suspect]
     Indication: PSORIASIS
     Route: 058
     Dates: start: 20110404
  2. ISONIAZID [Concomitant]
     Indication: LATENT TUBERCULOSIS
     Dates: start: 20101201
  3. LOWESTREN [Concomitant]
     Indication: CONTRACEPTION
     Dates: start: 20090101
  4. UNKNOWN CREAM [Concomitant]
     Indication: PSORIASIS
     Dates: start: 20101201
  5. HUMIRA [Suspect]
     Indication: PSORIASIS
     Dates: start: 20090101, end: 20100401

REACTIONS (4)
  - INCISION SITE PAIN [None]
  - LATENT TUBERCULOSIS [None]
  - ABDOMINAL PAIN [None]
  - OVARIAN CYST [None]
